FAERS Safety Report 13942897 (Version 1)
Quarter: 2017Q3

REPORT INFORMATION
  Report Type: Spontaneous
  Country: US (occurrence: US)
  Receive Date: 20170907
  Receipt Date: 20170907
  Transmission Date: 20171127
  Serious: No
  Sender: FDA-Public Use
  Company Number: None

PATIENT
  Age: 83 Year
  Sex: Female

DRUGS (1)
  1. TRIAM/HCTZ [Suspect]
     Active Substance: HYDROCHLOROTHIAZIDE\TRIAMTERENE
     Route: 048
     Dates: start: 20170613, end: 20170907

REACTIONS (4)
  - Hypoaesthesia [None]
  - Pain in extremity [None]
  - Eye irritation [None]
  - Pollakiuria [None]

NARRATIVE: CASE EVENT DATE: 20170613
